FAERS Safety Report 25331725 (Version 1)
Quarter: 2025Q2

REPORT INFORMATION
  Report Type: Spontaneous
  Country: US (occurrence: US)
  Receive Date: 20250519
  Receipt Date: 20250519
  Transmission Date: 20250716
  Serious: No
  Sender: BAYER HEALTHCARE PHARMACEUTICALS INC.
  Company Number: US-BAYER-2025A063316

PATIENT
  Sex: Female

DRUGS (2)
  1. ADEMPAS [Suspect]
     Active Substance: RIOCIGUAT
     Indication: Product used for unknown indication
     Dosage: 2.5 MG, TID
  2. OFEV [Suspect]
     Active Substance: NINTEDANIB
     Indication: Idiopathic pulmonary fibrosis
     Route: 048
     Dates: start: 20250312

REACTIONS (10)
  - Nausea [Unknown]
  - Diarrhoea [Unknown]
  - Eructation [Unknown]
  - Dyspepsia [Unknown]
  - Constipation [Unknown]
  - Headache [Unknown]
  - Haemorrhoidal haemorrhage [Unknown]
  - Tremor [Unknown]
  - Chest discomfort [Unknown]
  - Chest pain [Unknown]
